FAERS Safety Report 4395762-6 (Version None)
Quarter: 2004Q3

REPORT INFORMATION
  Report Type: 
  Country: None (occurrence: None)
  Receive Date: 20040709
  Receipt Date: 20040625
  Transmission Date: 20050211
  Serious: Yes (Hospitalization)
  Sender: FDA-Public Use
  Company Number: 2004S1000142

PATIENT
  Age: 48 Year
  Sex: Male
  Weight: 93 kg

DRUGS (11)
  1. CUBICIN [Suspect]
     Indication: CELLULITIS STAPHYLOCOCCAL
     Dosage: 370 MG; Q24H; IV
     Route: 042
     Dates: start: 20040608, end: 20040618
  2. CUBICIN [Suspect]
     Indication: STAPHYLOCOCCAL SEPSIS
     Dosage: 370 MG; Q24H; IV
     Route: 042
     Dates: start: 20040608, end: 20040618
  3. NORVASC [Concomitant]
  4. CLONIDINE HCL [Concomitant]
  5. VICODIN [Concomitant]
  6. HEPARIN [Concomitant]
  7. IBUPROFEN [Concomitant]
  8. TUMS [Concomitant]
  9. NAFCILLIN SODIUM [Concomitant]
  10. VANCOMYCIN [Concomitant]
  11. CEFTRIAXONE [Concomitant]

REACTIONS (7)
  - ALANINE AMINOTRANSFERASE INCREASED [None]
  - ASPARTATE AMINOTRANSFERASE INCREASED [None]
  - BLOOD CREATININE INCREASED [None]
  - BLOOD PHOSPHORUS INCREASED [None]
  - BLOOD POTASSIUM INCREASED [None]
  - COMPARTMENT SYNDROME [None]
  - RHABDOMYOLYSIS [None]
